FAERS Safety Report 4565113-2 (Version None)
Quarter: 2005Q1

REPORT INFORMATION
  Report Type: 
  Country: None (occurrence: None)
  Receive Date: 20050110
  Receipt Date: 20050110
  Transmission Date: 20050727
  Serious: No
  Sender: FDA-Public Use
  Company Number: None

PATIENT
  Sex: Female

DRUGS (1)
  1. ADDERALL 20 [Suspect]
     Dosage: 20 MG ONE PO Q AM
     Route: 048
     Dates: start: 20040604

REACTIONS (4)
  - DISORIENTATION [None]
  - DISTURBANCE IN ATTENTION [None]
  - DISTURBANCE IN SOCIAL BEHAVIOUR [None]
  - EDUCATIONAL PROBLEM [None]
